FAERS Safety Report 20427367 (Version 1)
Quarter: 2022Q1

REPORT INFORMATION
  Report Type: Report from Study
  Country: US (occurrence: US)
  Receive Date: 20220204
  Receipt Date: 20220204
  Transmission Date: 20220424
  Serious: No
  Sender: FDA-Public Use
  Company Number: US-EXELIXIS-CABO-21044427

PATIENT
  Sex: Female

DRUGS (13)
  1. CABOMETYX [Suspect]
     Active Substance: CABOZANTINIB S-MALATE
     Indication: Metastases to lung
     Dosage: 40 MG, QD
     Route: 048
     Dates: start: 20210909
  2. HYDROCODONE [Concomitant]
     Active Substance: HYDROCODONE
  3. METHOCARBAMOL [Concomitant]
     Active Substance: METHOCARBAMOL
  4. CLONAZEPAM [Concomitant]
     Active Substance: CLONAZEPAM
  5. CLOBETASOL [Concomitant]
     Active Substance: CLOBETASOL
  6. GABAPENTIN [Concomitant]
     Active Substance: GABAPENTIN
  7. ROPINIROLE [Concomitant]
     Active Substance: ROPINIROLE
  8. FIORICET [Concomitant]
     Active Substance: ACETAMINOPHEN\BUTALBITAL\CAFFEINE
  9. ALPRAZOLAM [Concomitant]
     Active Substance: ALPRAZOLAM
  10. CLOPIDOGREL [Concomitant]
     Active Substance: CLOPIDOGREL BISULFATE
  11. HYDROCHLOROTHIAZIDE\LOSARTAN POTASSIUM [Concomitant]
     Active Substance: HYDROCHLOROTHIAZIDE\LOSARTAN POTASSIUM
  12. OMEGA-3-ACID ETHYL ESTER [Concomitant]
     Active Substance: OMEGA-3-ACID ETHYL ESTERS
  13. Dansetron [Concomitant]

REACTIONS (2)
  - Decreased appetite [Not Recovered/Not Resolved]
  - Off label use [Unknown]
